FAERS Safety Report 17265840 (Version 1)
Quarter: 2020Q1

REPORT INFORMATION
  Report Type: Spontaneous
  Country: US (occurrence: US)
  Receive Date: 20200114
  Receipt Date: 20200114
  Transmission Date: 20200409
  Serious: No
  Sender: FDA-Public Use
  Company Number: US-ALLERGAN-1938284US

PATIENT
  Age: 18 Year
  Sex: Male
  Weight: 160 kg

DRUGS (3)
  1. DALBAVANCIN HCL UNK [Suspect]
     Active Substance: DALBAVANCIN HYDROCHLORIDE
     Indication: ENDOCARDITIS
     Dosage: 1500 MG, SINGLE
     Route: 042
     Dates: start: 20191001, end: 20191001
  2. DALBAVANCIN HCL UNK [Suspect]
     Active Substance: DALBAVANCIN HYDROCHLORIDE
     Dosage: 1500 MG, SINGLE
     Route: 042
     Dates: start: 20190917, end: 20190917
  3. DALBAVANCIN HCL UNK [Suspect]
     Active Substance: DALBAVANCIN HYDROCHLORIDE
     Dosage: 1500 MG, SINGLE
     Route: 042
     Dates: start: 20190924, end: 20190924

REACTIONS (1)
  - Off label use [Unknown]
